FAERS Safety Report 19806869 (Version 1)
Quarter: 2021Q3

REPORT INFORMATION
  Report Type: Spontaneous
  Country: MX (occurrence: MX)
  Receive Date: 20210909
  Receipt Date: 20210909
  Transmission Date: 20211014
  Serious: Yes (Other)
  Sender: FDA-Public Use
  Company Number: MX-MICRO LABS LIMITED-ML2021-02150

PATIENT
  Age: 89 Year
  Sex: Male

DRUGS (7)
  1. MIRTAZAPINE. [Suspect]
     Active Substance: MIRTAZAPINE
  2. INSULIN DETEMIR [Suspect]
     Active Substance: INSULIN DETEMIR
  3. TELMISARTAN. [Suspect]
     Active Substance: TELMISARTAN
  4. BISOPROLOL [Suspect]
     Active Substance: BISOPROLOL
  5. TAMSULOSIN [Suspect]
     Active Substance: TAMSULOSIN
  6. ASPART INSULIN [Suspect]
     Active Substance: INSULIN ASPART
  7. EMPAGLIFLOZIN [Suspect]
     Active Substance: EMPAGLIFLOZIN

REACTIONS (1)
  - Delirium [Unknown]
